FAERS Safety Report 4966106-3 (Version None)
Quarter: 2006Q2

REPORT INFORMATION
  Report Type: 
  Country: None (occurrence: None)
  Receive Date: 20060403
  Receipt Date: 20060322
  Transmission Date: 20061013
  Serious: Yes (Death)
  Sender: FDA-Public Use
  Company Number: 2006027445

PATIENT
  Age: 81 Year
  Sex: Male

DRUGS (1)
  1. DOFETILIDE (DOFETILIDE) [Suspect]
     Indication: ILL-DEFINED DISORDER

REACTIONS (1)
  - ACUTE MYOCARDIAL INFARCTION [None]
